FAERS Safety Report 8255941-4 (Version None)
Quarter: 2012Q2

REPORT INFORMATION
  Report Type: 
  Country: None (occurrence: None)
  Receive Date: 20120403
  Receipt Date: 20120320
  Transmission Date: 20120825
  Serious: No
  Sender: FDA-Public Use
  Company Number: US-COVIDIEN/TYCO HEALTHCARE/MALLINCKRODT-T201201126

PATIENT
  Age: 67 Year
  Sex: Male

DRUGS (2)
  1. EXALGO [Suspect]
     Dosage: 8 MG, TOOK ANOTHER AT 2315
     Dates: start: 20120121
  2. EXALGO [Suspect]
     Indication: PAIN
     Dosage: 8 MG, TOOK ONE AT 1915
     Dates: start: 20120121

REACTIONS (1)
  - INAPPROPRIATE SCHEDULE OF DRUG ADMINISTRATION [None]
